FAERS Safety Report 16642272 (Version 1)
Quarter: 2019Q3

REPORT INFORMATION
  Report Type: Spontaneous
  Country: US (occurrence: US)
  Receive Date: 20190728
  Receipt Date: 20190728
  Transmission Date: 20191004
  Serious: Yes (Death)
  Sender: FDA-Public Use
  Company Number: None

PATIENT
  Age: 64 Year
  Sex: Female
  Weight: 92.25 kg

DRUGS (11)
  1. FUROSEMIDE. [Concomitant]
     Active Substance: FUROSEMIDE
  2. ACIDOPHILUS [Concomitant]
     Active Substance: LACTOBACILLUS ACIDOPHILUS
  3. MIRALAX [Concomitant]
     Active Substance: POLYETHYLENE GLYCOL 3350
  4. BACLOFEN. [Concomitant]
     Active Substance: BACLOFEN
  5. GABAPENTIN. [Concomitant]
     Active Substance: GABAPENTIN
  6. NITROFURANTOIN. [Concomitant]
     Active Substance: NITROFURANTOIN
  7. APIXABAN [Concomitant]
     Active Substance: APIXABAN
  8. AMPHETAMINE [Concomitant]
     Active Substance: AMPHETAMINE
  9. FOSINOPRIL [Concomitant]
     Active Substance: FOSINOPRIL
  10. OCREVUS [Suspect]
     Active Substance: OCRELIZUMAB
     Indication: PRIMARY PROGRESSIVE MULTIPLE SCLEROSIS
     Route: 042
     Dates: start: 20180809, end: 20180823
  11. FOLEY CATHETER [Concomitant]

REACTIONS (6)
  - Metastases to lung [None]
  - Metastases to bone [None]
  - Metastases to liver [None]
  - Metastatic renal cell carcinoma [None]
  - Malignant neoplasm progression [None]
  - Metastases to peritoneum [None]

NARRATIVE: CASE EVENT DATE: 20181024
